FAERS Safety Report 4659378-6 (Version None)
Quarter: 2005Q2

REPORT INFORMATION
  Report Type: 
  Country: None (occurrence: None)
  Receive Date: 20050510
  Receipt Date: 20050428
  Transmission Date: 20051028
  Serious: Yes (Other)
  Sender: FDA-Public Use
  Company Number: 2005-05-0112

PATIENT
  Age: 3 Year
  Sex: Female

DRUGS (1)
  1. CLARITIN-D [Suspect]
     Indication: RHINITIS
     Dosage: 5 ML QD ORAL
     Route: 048
     Dates: start: 20050425

REACTIONS (3)
  - ABNORMAL BEHAVIOUR [None]
  - HALLUCINATION [None]
  - INSOMNIA [None]
